FAERS Safety Report 4801196-X (Version None)
Quarter: 2005Q4

REPORT INFORMATION
  Report Type: 
  Country: None (occurrence: None)
  Receive Date: 20051011
  Receipt Date: 20050915
  Transmission Date: 20060501
  Serious: Yes (Life-Threatening, Hospitalization)
  Sender: FDA-Public Use
  Company Number: DSA_27105_2005

PATIENT
  Age: 92 Year
  Sex: Female

DRUGS (13)
  1. RENIVACE [Suspect]
     Indication: HYPERTENSION
     Dosage: 2.5 MG  BID PO
     Route: 048
     Dates: end: 20050730
  2. POLLAKISU [Suspect]
     Indication: NEUROGENIC BLADDER
     Dosage: 2 MG Q DAY PO
     Route: 048
     Dates: start: 20050714, end: 20050730
  3. POSTININ [Suspect]
     Indication: NEUROGENIC BLADDER
     Dosage: DF
     Dates: start: 20020101, end: 20050710
  4. NORVASC [Suspect]
     Indication: HYPERTENSION
     Dosage: 5 MG Q DAY PO
     Route: 048
     Dates: end: 20050730
  5. GASTER D [Suspect]
     Indication: GASTRITIS
     Dosage: 20 MG QD PO
     Route: 048
     Dates: end: 20050730
  6. OPALMON [Concomitant]
  7. GLUCONSAN K [Concomitant]
  8. MARZULENE S [Concomitant]
  9. MUCODYNE [Concomitant]
  10. LANIRAPID [Concomitant]
  11. BENIDIPINE HYDROCHLORIDE [Concomitant]
  12. LASIX [Concomitant]
  13. SPIRONOLACTONE [Concomitant]

REACTIONS (3)
  - CEREBRAL INFARCTION [None]
  - PURPURA [None]
  - THROMBOCYTOPENIA [None]
